FAERS Safety Report 9969652 (Version 1)
Quarter: 2014Q1

REPORT INFORMATION
  Report Type: Spontaneous
  Country: US (occurrence: None)
  Receive Date: 20140304
  Receipt Date: 20140304
  Transmission Date: 20141002
  Serious: Yes (Disabling)
  Sender: FDA-Public Use
  Company Number: None

PATIENT
  Age: 58 Year
  Sex: Female
  Weight: 81.65 kg

DRUGS (1)
  1. CIPROFLOXACIN [Suspect]
     Indication: URINARY TRACT INFECTION
     Dosage: 2 PILLS DAILY TWICE DAILY TAKEN BY MOUTH
     Route: 048
     Dates: start: 20140217, end: 20140222

REACTIONS (3)
  - Arthralgia [None]
  - Gait disturbance [None]
  - Feeling abnormal [None]
